FAERS Safety Report 4617083-6 (Version None)
Quarter: 2005Q1

REPORT INFORMATION
  Report Type: 
  Country: None (occurrence: None)
  Receive Date: 20050321
  Receipt Date: 20050315
  Transmission Date: 20050727
  Serious: Yes (Death)
  Sender: FDA-Public Use
  Company Number: 2005-126233-NL

PATIENT
  Age: 18 Year
  Sex: Male

DRUGS (1)
  1. VECURONIUM BROMIDE [Suspect]

REACTIONS (4)
  - CARDIAC ARREST [None]
  - MEDICATION ERROR [None]
  - PARALYSIS [None]
  - RESPIRATORY ARREST [None]
